FAERS Safety Report 6438106-8 (Version None)
Quarter: 2009Q4

REPORT INFORMATION
  Report Type: 
  Country: None (occurrence: None)
  Receive Date: 20091112
  Receipt Date: 20091110
  Transmission Date: 20100525
  Serious: Yes (Hospitalization)
  Sender: FDA-Public Use
  Company Number: US-PURDUE-USA-2009-0040963

PATIENT
  Age: 75 Year
  Sex: Male

DRUGS (1)
  1. RYZOLT [Suspect]
     Indication: DRUG USE FOR UNKNOWN INDICATION
     Dosage: 100 MG, TID
     Route: 048

REACTIONS (3)
  - ANTICHOLINERGIC SYNDROME [None]
  - INCORRECT DOSE ADMINISTERED [None]
  - MENTAL STATUS CHANGES [None]
